FAERS Safety Report 15661065 (Version 3)
Quarter: 2021Q3

REPORT INFORMATION
  Report Type: Spontaneous
  Country: US (occurrence: US)
  Receive Date: 20181127
  Receipt Date: 20210824
  Transmission Date: 20211014
  Serious: Yes (Hospitalization, Other)
  Sender: FDA-Public Use
  Company Number: US-GILEAD-2018-0376087

PATIENT
  Age: 48 Year
  Sex: Male
  Weight: 86.17 kg

DRUGS (35)
  1. STRIBILD [Suspect]
     Active Substance: COBICISTAT\ELVITEGRAVIR\EMTRICITABINE\TENOFOVIR DISOPROXIL FUMARATE
     Dosage: UNK
     Route: 065
     Dates: start: 201409, end: 201603
  2. MEGESTROL ACETATE. [Concomitant]
     Active Substance: MEGESTROL ACETATE
  3. HYDROXYZINE PAMOATE. [Concomitant]
     Active Substance: HYDROXYZINE PAMOATE
  4. CROMOLYN SOD [Concomitant]
     Active Substance: CROMOLYN SODIUM
  5. BIKTARVY [Concomitant]
     Active Substance: BICTEGRAVIR SODIUM\EMTRICITABINE\TENOFOVIR ALAFENAMIDE FUMARATE
  6. LYRICA [Concomitant]
     Active Substance: PREGABALIN
  7. FLUTICASONE PROPIONATE. [Concomitant]
     Active Substance: FLUTICASONE PROPIONATE
  8. AMMONIUM LACTATE. [Concomitant]
     Active Substance: AMMONIUM LACTATE
  9. NORVIR [Concomitant]
     Active Substance: RITONAVIR
  10. SPIRIVA [Concomitant]
     Active Substance: TIOTROPIUM BROMIDE MONOHYDRATE
  11. BREO ELLIPTA [Concomitant]
     Active Substance: FLUTICASONE FUROATE\VILANTEROL TRIFENATATE
  12. COMBIVIR [Concomitant]
     Active Substance: LAMIVUDINE\ZIDOVUDINE
  13. FLUNISOLIDE. [Concomitant]
     Active Substance: FLUNISOLIDE
  14. VENTOLINE [SALBUTAMOL] [Concomitant]
     Active Substance: ALBUTEROL SULFATE
  15. LISINOPRIL. [Concomitant]
     Active Substance: LISINOPRIL
  16. LORATADINE. [Concomitant]
     Active Substance: LORATADINE
  17. TESTOSTERONE CYPIONATE. [Concomitant]
     Active Substance: TESTOSTERONE CYPIONATE
  18. FAMOTIDINE. [Concomitant]
     Active Substance: FAMOTIDINE
  19. SULFAMETHOXAZOL;TRIMETOPRIM [Concomitant]
     Active Substance: SULFAMETHOXAZOLE\TRIMETHOPRIM
  20. PREZISTA [Concomitant]
     Active Substance: DARUNAVIR ETHANOLATE
  21. STRIBILD [Suspect]
     Active Substance: COBICISTAT\ELVITEGRAVIR\EMTRICITABINE\TENOFOVIR DISOPROXIL FUMARATE
     Indication: HIV INFECTION
     Dosage: UNK
     Route: 048
     Dates: start: 20141215, end: 201603
  22. DEPO TESTOSTERONE [Concomitant]
     Active Substance: TESTOSTERONE
  23. PROAIR HFA [Concomitant]
     Active Substance: ALBUTEROL SULFATE
  24. PREGABALIN. [Concomitant]
     Active Substance: PREGABALIN
  25. VIAGRA [Concomitant]
     Active Substance: SILDENAFIL CITRATE
  26. GENVOYA [Concomitant]
     Active Substance: COBICISTAT\ELVITEGRAVIR\EMTRICITABINE\TENOFOVIR ALAFENAMIDE FUMARATE
  27. EPIVIR [Concomitant]
     Active Substance: LAMIVUDINE
  28. RETROVIR [Concomitant]
     Active Substance: ZIDOVUDINE
  29. TAMSULOSIN HCL [Concomitant]
     Active Substance: TAMSULOSIN HYDROCHLORIDE
  30. TRUVADA [Suspect]
     Active Substance: EMTRICITABINE\TENOFOVIR DISOPROXIL FUMARATE
     Indication: HIV INFECTION
     Dosage: UNK
     Route: 048
     Dates: start: 2004, end: 201409
  31. JULUCA [Concomitant]
     Active Substance: DOLUTEGRAVIR SODIUM\RILPIVIRINE HYDROCHLORIDE
  32. SERTRALINE HCL [Concomitant]
     Active Substance: SERTRALINE HYDROCHLORIDE
  33. PROMETHAZINE HCL [Concomitant]
     Active Substance: PROMETHAZINE HYDROCHLORIDE
  34. HYDROCODONE [Concomitant]
     Active Substance: HYDROCODONE
  35. GABAPENTIN. [Concomitant]
     Active Substance: GABAPENTIN

REACTIONS (14)
  - Economic problem [Unknown]
  - Impaired work ability [Not Recovered/Not Resolved]
  - Spinal compression fracture [Unknown]
  - Anxiety [Not Recovered/Not Resolved]
  - Osteoporosis [Not Recovered/Not Resolved]
  - Mobility decreased [Not Recovered/Not Resolved]
  - Anhedonia [Not Recovered/Not Resolved]
  - Chronic kidney disease [Not Recovered/Not Resolved]
  - Multiple fractures [Not Recovered/Not Resolved]
  - Bone density decreased [Not Recovered/Not Resolved]
  - Emotional distress [Not Recovered/Not Resolved]
  - Renal failure [Not Recovered/Not Resolved]
  - Pain [Not Recovered/Not Resolved]
  - Renal impairment [Not Recovered/Not Resolved]

NARRATIVE: CASE EVENT DATE: 20141020
